FAERS Safety Report 11279957 (Version 1)
Quarter: 2015Q3

REPORT INFORMATION
  Report Type: Spontaneous
  Country: NL (occurrence: NL)
  Receive Date: 20150717
  Receipt Date: 20150717
  Transmission Date: 20151125
  Serious: Yes (Other)
  Sender: FDA-Public Use
  Company Number: NL-MYLANLABS-2015M1023695

PATIENT

DRUGS (5)
  1. AZATHIOPRINE. [Suspect]
     Active Substance: AZATHIOPRINE
     Indication: DERMATITIS ATOPIC
     Dosage: 50 MG/DAY
     Route: 065
  2. AZATHIOPRINE. [Interacting]
     Active Substance: AZATHIOPRINE
     Indication: OFF LABEL USE
     Dosage: 150 MG/DAY
     Route: 065
  3. AZATHIOPRINE. [Interacting]
     Active Substance: AZATHIOPRINE
     Indication: DYSHIDROTIC ECZEMA
     Dosage: 100 MG/DAY
     Route: 065
  4. OMEPRAZOLE. [Interacting]
     Active Substance: OMEPRAZOLE
     Indication: GASTRIC DISORDER
     Route: 065
  5. PREDNISONE. [Concomitant]
     Active Substance: PREDNISONE
     Indication: DERMATITIS ATOPIC
     Dosage: TAPERING REGIME WITH AN INITIAL DOSAGE OF 20 MG/DAY
     Route: 065

REACTIONS (3)
  - Gastric disorder [Recovered/Resolved]
  - Drug interaction [Recovering/Resolving]
  - Hepatic enzyme increased [Recovering/Resolving]
